FAERS Safety Report 14788726 (Version 3)
Quarter: 2020Q1

REPORT INFORMATION
  Report Type: Spontaneous
  Country: US (occurrence: US)
  Receive Date: 20180423
  Receipt Date: 20200127
  Transmission Date: 20200409
  Serious: No
  Sender: FDA-Public Use
  Company Number: US-AMGEN-USASP2018053667

PATIENT
  Age: 61 Year
  Sex: Female

DRUGS (1)
  1. ENBREL [Suspect]
     Active Substance: ETANERCEPT
     Indication: PRODUCT USED FOR UNKNOWN INDICATION
     Dosage: 50 MILLIGRAM, QWK
     Route: 065

REACTIONS (5)
  - Joint range of motion decreased [Unknown]
  - Drug ineffective [Unknown]
  - Synovitis [Not Recovered/Not Resolved]
  - Pain [Unknown]
  - Swelling [Unknown]
